FAERS Safety Report 16819492 (Version 2)
Quarter: 2019Q3

REPORT INFORMATION
  Report Type: Spontaneous
  Country: US (occurrence: US)
  Receive Date: 20190917
  Receipt Date: 20190926
  Transmission Date: 20191005
  Serious: No
  Sender: FDA-Public Use
  Company Number: US-009507513-1909USA003362

PATIENT
  Age: 39 Year
  Sex: Female

DRUGS (4)
  1. ZOLOFT [Concomitant]
     Active Substance: SERTRALINE HYDROCHLORIDE
  2. ESTARYLLA [Concomitant]
     Active Substance: ETHINYL ESTRADIOL\NORGESTIMATE
     Indication: INFERTILITY FEMALE
  3. GANIRELIX ACETATE INJECTION [Suspect]
     Active Substance: GANIRELIX ACETATE
     Dosage: 250 MCG DAILY
     Route: 058
     Dates: start: 20190729
  4. NORTREL (LEVONORGESTREL) [Concomitant]
     Active Substance: LEVONORGESTREL

REACTIONS (3)
  - Mood altered [Unknown]
  - Muscle spasms [Unknown]
  - Headache [Unknown]
